FAERS Safety Report 6537220-6 (Version None)
Quarter: 2010Q1

REPORT INFORMATION
  Report Type: 
  Country: None (occurrence: None)
  Receive Date: 20100114
  Receipt Date: 20100111
  Transmission Date: 20100710
  Serious: Yes (Other)
  Sender: FDA-Public Use
  Company Number: US-ROCHE-674749

PATIENT
  Sex: Male
  Weight: 90.7 kg

DRUGS (4)
  1. RIBAVIRIN [Suspect]
     Indication: HEPATITIS C
     Dosage: FORM: PILLS
     Route: 048
     Dates: start: 20021108, end: 20030501
  2. PEGASYS [Suspect]
     Indication: HEPATITIS C
     Route: 058
     Dates: start: 20021108, end: 20030501
  3. XANAX [Concomitant]
  4. ZYPREXA [Concomitant]

REACTIONS (9)
  - ABNORMAL BEHAVIOUR [None]
  - CEREBROVASCULAR ACCIDENT [None]
  - CHEST PAIN [None]
  - COMMUNICATION DISORDER [None]
  - DYSPNOEA [None]
  - FATIGUE [None]
  - IRRITABILITY [None]
  - MEMORY IMPAIRMENT [None]
  - SUICIDE ATTEMPT [None]
